FAERS Safety Report 25097024 (Version 2)
Quarter: 2025Q2

REPORT INFORMATION
  Report Type: Spontaneous
  Country: US (occurrence: US)
  Receive Date: 20250319
  Receipt Date: 20250508
  Transmission Date: 20250716
  Serious: Yes (Death)
  Sender: Unknown Manufacturer
  Company Number: US-MTPC-MTPA2025-0005137

PATIENT
  Sex: Female

DRUGS (4)
  1. RADICAVA ORS [Suspect]
     Active Substance: EDARAVONE
     Indication: Amyotrophic lateral sclerosis
     Dosage: 5 MILLILITER, QD, FOR 10 DAYS OUT OF 14 DAYS, FOLLOWED BY 14 DAY DRUG FREE PERIOD
     Route: 048
     Dates: start: 20240419
  2. RADICAVA ORS [Suspect]
     Active Substance: EDARAVONE
     Indication: Amyotrophic lateral sclerosis
     Dosage: 5 MILLILITER, QD, FOR 10 DAYS OUT OF 14 DAYS, FOLLOWED BY 14 DAY DRUG FREE PERIOD
     Route: 048
     Dates: start: 20240419
  3. RADICAVA ORS [Suspect]
     Active Substance: EDARAVONE
     Route: 065
     Dates: start: 202405
  4. RADICAVA ORS [Suspect]
     Active Substance: EDARAVONE
     Route: 065
     Dates: start: 202405

REACTIONS (1)
  - Disease progression [Fatal]
